FAERS Safety Report 9689515 (Version 1)
Quarter: 2013Q4

REPORT INFORMATION
  Report Type: Spontaneous
  Country: US (occurrence: US)
  Receive Date: 20131115
  Receipt Date: 20131115
  Transmission Date: 20140711
  Serious: Yes (Other)
  Sender: FDA-Public Use
  Company Number: US-AMGEN-USASP2013080019

PATIENT
  Age: 34 Year
  Sex: Female

DRUGS (3)
  1. ENBREL [Suspect]
     Indication: RHEUMATOID ARTHRITIS
     Dosage: UNK
     Route: 065
  2. MTX                                /00113801/ [Concomitant]
     Dosage: UNK
  3. PREDNISONE [Concomitant]
     Dosage: UNK

REACTIONS (7)
  - Meniscus injury [Unknown]
  - Condition aggravated [Unknown]
  - Joint range of motion decreased [Unknown]
  - Gait disturbance [Unknown]
  - Joint swelling [Unknown]
  - Arthralgia [Unknown]
  - Neck pain [Unknown]
